FAERS Safety Report 6215228-8 (Version None)
Quarter: 2009Q2

REPORT INFORMATION
  Report Type: 
  Country: None (occurrence: None)
  Receive Date: 20090604
  Receipt Date: 20090529
  Transmission Date: 20091009
  Serious: Yes (Hospitalization)
  Sender: FDA-Public Use
  Company Number: US-ASTRAZENECA-2009UW12526

PATIENT
  Age: 12654 Day
  Sex: Female
  Weight: 61.2 kg

DRUGS (2)
  1. ACCOLATE [Suspect]
     Indication: CAPSULAR CONTRACTURE ASSOCIATED WITH BREAST IMPLANT
     Route: 048
     Dates: start: 20060815
  2. LEXAPRO [Concomitant]

REACTIONS (2)
  - JAUNDICE [None]
  - LIVER TRANSPLANT [None]
